FAERS Safety Report 4789702-5 (Version None)
Quarter: 2005Q4

REPORT INFORMATION
  Report Type: 
  Country: None (occurrence: None)
  Receive Date: 20051005
  Receipt Date: 20051005
  Transmission Date: 20060501
  Serious: Yes (Hospitalization)
  Sender: FDA-Public Use
  Company Number: None

PATIENT
  Age: 55 Year
  Sex: Female
  Weight: 90 kg

DRUGS (16)
  1. THYMOGLOBULIN [Suspect]
     Indication: TRANSPLANT REJECTION
     Dosage: 90 MG QD IV
     Route: 042
     Dates: start: 20050901, end: 20050905
  2. NEORAL [Concomitant]
  3. CELLCEPT [Concomitant]
  4. PREDNISONE [Concomitant]
  5. MYCELEX [Concomitant]
  6. FERROUS SULFATE TAB [Concomitant]
  7. MAGOX [Concomitant]
  8. ASCORBIC ACID [Concomitant]
  9. PRAVACHOL [Concomitant]
  10. BACTRIM DS [Concomitant]
  11. VALCYTE [Concomitant]
  12. CARDURA [Concomitant]
  13. SENNA [Concomitant]
  14. HYDRALAZINE [Concomitant]
  15. OSCAL WITH D [Concomitant]
  16. PROTONIX [Concomitant]

REACTIONS (4)
  - ARTHRALGIA [None]
  - BLOOD CREATININE INCREASED [None]
  - JOINT SWELLING [None]
  - PAIN IN JAW [None]
